FAERS Safety Report 18485559 (Version 3)
Quarter: 2022Q3

REPORT INFORMATION
  Report Type: Spontaneous
  Country: US (occurrence: US)
  Receive Date: 20201110
  Receipt Date: 20220802
  Transmission Date: 20221027
  Serious: Yes (Death, Other)
  Sender: FDA-Public Use
  Company Number: US-GLAXOSMITHKLINE-US2020GSK218524

PATIENT
  Sex: Male

DRUGS (9)
  1. PREVACID 24 HR [Suspect]
     Active Substance: LANSOPRAZOLE
     Indication: Gastrooesophageal reflux disease
     Dosage: 15 MG, QD
     Route: 065
     Dates: start: 2010, end: 2014
  2. OMEPRAZOLE [Suspect]
     Active Substance: OMEPRAZOLE
     Indication: Product used for unknown indication
     Dosage: 20 MG, QD
     Route: 048
     Dates: start: 20080728, end: 20110425
  3. OMEPRAZOLE [Suspect]
     Active Substance: OMEPRAZOLE
     Dosage: 20 MG, BID
     Route: 048
     Dates: start: 20111105, end: 20120605
  4. OMEPRAZOLE [Suspect]
     Active Substance: OMEPRAZOLE
     Indication: Gastrooesophageal reflux disease
     Dosage: 20 MG, QD
     Route: 065
     Dates: start: 2010, end: 2014
  5. NEXIUM 24HR [Suspect]
     Active Substance: ESOMEPRAZOLE MAGNESIUM
     Indication: Product used for unknown indication
     Dosage: 20 MG, QD
     Route: 065
     Dates: start: 2010, end: 2014
  6. PRILOSEC [Suspect]
     Active Substance: OMEPRAZOLE MAGNESIUM
     Indication: Gastrooesophageal reflux disease
     Dosage: 20 MG, QD
     Route: 065
     Dates: start: 2010, end: 2010
  7. PRILOSEC [Suspect]
     Active Substance: OMEPRAZOLE MAGNESIUM
     Indication: Gastrooesophageal reflux disease
     Dosage: 20 MG, QD
     Route: 065
     Dates: start: 2010, end: 2014
  8. PROTONIX [Suspect]
     Active Substance: PANTOPRAZOLE SODIUM
     Indication: Product used for unknown indication
     Dosage: 40 MG, QD
     Route: 048
     Dates: start: 20101231, end: 20110129
  9. PANTOPRAZOLE [Suspect]
     Active Substance: PANTOPRAZOLE
     Indication: Product used for unknown indication
     Dosage: 40 MG, QD
     Route: 048
     Dates: start: 20101231, end: 20110129

REACTIONS (24)
  - Respiratory arrest [Fatal]
  - Cardiac arrest [Fatal]
  - Chronic kidney disease [Unknown]
  - End stage renal disease [Unknown]
  - Renal impairment [Unknown]
  - Nephrolithiasis [Unknown]
  - Nephrogenic anaemia [Unknown]
  - Renal failure [Unknown]
  - Dialysis [Unknown]
  - Renal transplant [Unknown]
  - Hyperparathyroidism secondary [Unknown]
  - Device dependence [Unknown]
  - Nephropathy [Unknown]
  - Renal cyst [Unknown]
  - Urinary hesitation [Unknown]
  - Renal mass [Unknown]
  - Haematuria [Unknown]
  - Renal disorder [Unknown]
  - Microalbuminuria [Unknown]
  - Nocturia [Unknown]
  - Lower urinary tract symptoms [Unknown]
  - Pollakiuria [Unknown]
  - Proteinuria [Unknown]
  - Anxiety [Unknown]

NARRATIVE: CASE EVENT DATE: 20120101
